FAERS Safety Report 9286615 (Version 2)
Quarter: 2013Q2

REPORT INFORMATION
  Report Type: Spontaneous
  Country: FR (occurrence: FR)
  Receive Date: 20130513
  Receipt Date: 20130513
  Transmission Date: 20140414
  Serious: Yes (Other)
  Sender: FDA-Public Use
  Company Number: PHHY2013FR032818

PATIENT
  Age: 55 Year
  Sex: Male
  Weight: 66 kg

DRUGS (2)
  1. VINORELBINE SANDOZ [Suspect]
     Indication: LUNG NEOPLASM MALIGNANT
     Dosage: 55 MG
     Route: 042
     Dates: start: 20130321, end: 20130321
  2. METHYLPREDNISOLONE [Concomitant]
     Dosage: 80 MG
     Route: 042

REACTIONS (7)
  - Injection site vesicles [Unknown]
  - Pruritus [Unknown]
  - Injection site warmth [Recovered/Resolved]
  - Product lot number issue [Unknown]
  - Injection site pain [Recovered/Resolved]
  - Injection site erythema [Recovered/Resolved]
  - Application site reaction [Recovered/Resolved]
